FAERS Safety Report 7477781-6 (Version None)
Quarter: 2011Q2

REPORT INFORMATION
  Report Type: 
  Country: None (occurrence: None)
  Receive Date: 20110513
  Receipt Date: 20081010
  Transmission Date: 20111010
  Serious: No
  Sender: FDA-Public Use
  Company Number: A0752444A

PATIENT
  Sex: Female

DRUGS (1)
  1. TREXIMET [Suspect]
     Route: 065

REACTIONS (2)
  - DRUG INEFFECTIVE [None]
  - HOT FLUSH [None]
